FAERS Safety Report 10305888 (Version 2)
Quarter: 2014Q3

REPORT INFORMATION
  Report Type: Spontaneous
  Country: US (occurrence: US)
  Receive Date: 20140715
  Receipt Date: 20140819
  Transmission Date: 20150326
  Serious: Yes (Life-Threatening, Hospitalization, Other)
  Sender: FDA-Public Use
  Company Number: PHEH2014US013705

PATIENT
  Age: 40 Year
  Sex: Male
  Weight: 84.35 kg

DRUGS (1)
  1. GILENYA [Suspect]
     Active Substance: FINGOLIMOD HYDROCHLORIDE
     Indication: MULTIPLE SCLEROSIS
     Dosage: 0.5 MG, QD
     Route: 048
     Dates: start: 20140321, end: 20140527

REACTIONS (14)
  - Cognitive disorder [Recovering/Resolving]
  - Limb discomfort [Recovering/Resolving]
  - Central nervous system lesion [Recovering/Resolving]
  - Dizziness [Unknown]
  - Nuclear magnetic resonance imaging brain abnormal [Recovering/Resolving]
  - Pupils unequal [Recovering/Resolving]
  - Asthenia [Recovering/Resolving]
  - Depression [Recovering/Resolving]
  - Progressive multiple sclerosis [Recovering/Resolving]
  - Dysarthria [Recovering/Resolving]
  - Multiple sclerosis relapse [Recovering/Resolving]
  - Dysphagia [Recovering/Resolving]
  - Gait disturbance [Recovering/Resolving]
  - Neuromyelitis optica [Recovering/Resolving]

NARRATIVE: CASE EVENT DATE: 20140805
